FAERS Safety Report 24765613 (Version 2)
Quarter: 2024Q4

REPORT INFORMATION
  Report Type: Spontaneous
  Country: US (occurrence: US)
  Receive Date: 20241223
  Receipt Date: 20241224
  Transmission Date: 20250114
  Serious: Yes (Other)
  Sender: MYLAN
  Company Number: US-MYLANLABS-2024M1113098

PATIENT
  Age: 20 Year
  Sex: Female

DRUGS (7)
  1. POTASSIUM CHLORIDE [Suspect]
     Active Substance: POTASSIUM CHLORIDE
     Indication: Hypokalaemia
     Dosage: 30 MILLIEQUIVALENT, BID
     Route: 048
  2. MAGNESIUM OXIDE [Concomitant]
     Active Substance: MAGNESIUM OXIDE
     Indication: Hypomagnesaemia
     Dosage: 400 MILLIGRAM, BID
     Route: 048
  3. MAGNESIUM OXIDE [Concomitant]
     Active Substance: MAGNESIUM OXIDE
     Indication: Hypomagnesaemia
     Dosage: UNK
     Route: 042
  4. AMILORIDE [Concomitant]
     Active Substance: AMILORIDE
     Indication: Hypokalaemia
     Dosage: 5 MILLIGRAM, QD
     Route: 065
  5. AMILORIDE [Concomitant]
     Active Substance: AMILORIDE
     Dosage: 10 MILLIGRAM, QD; INCREASED DOSE
     Route: 065
  6. AMILORIDE [Concomitant]
     Active Substance: AMILORIDE
     Dosage: 10 MILLIGRAM, QD; DURING PREGNANCY; RESTARTED DOSE
     Route: 065
  7. AMILORIDE [Concomitant]
     Active Substance: AMILORIDE
     Dosage: 10 MILLIGRAM, QD;DURING BREASTFEEDING; RESTARTED DOSE
     Route: 065

REACTIONS (1)
  - Drug ineffective [Unknown]
